FAERS Safety Report 10397105 (Version 1)
Quarter: 2014Q3

REPORT INFORMATION
  Report Type: Spontaneous
  Country: DE (occurrence: DE)
  Receive Date: 20140820
  Receipt Date: 20140820
  Transmission Date: 20150326
  Serious: Yes (Congenital Anomaly)
  Sender: FDA-Public Use
  Company Number: DE-TEVA-501646GER

PATIENT
  Age: 0 Year
  Sex: Female

DRUGS (3)
  1. FEMIBION [Concomitant]
     Active Substance: VITAMINS
     Route: 064
  2. CYTOTEC [Concomitant]
     Active Substance: MISOPROSTOL
     Route: 064
  3. CITALOPRAM [Suspect]
     Active Substance: CITALOPRAM HYDROBROMIDE
     Route: 064

REACTIONS (4)
  - Cerebral ventricle dilatation [Not Recovered/Not Resolved]
  - Talipes [Not Recovered/Not Resolved]
  - Arnold-Chiari malformation [Not Recovered/Not Resolved]
  - Spina bifida [Not Recovered/Not Resolved]
